FAERS Safety Report 4855412-9 (Version None)
Quarter: 2005Q4

REPORT INFORMATION
  Report Type: 
  Country: None (occurrence: None)
  Receive Date: 20051125
  Receipt Date: 20050418
  Transmission Date: 20060501
  Serious: Yes (Hospitalization)
  Sender: FDA-Public Use
  Company Number: US-JNJFOC-20050300731

PATIENT
  Age: 69 Year
  Sex: Female
  Weight: 70.7611 kg

DRUGS (7)
  1. LEVAQUIN [Suspect]
     Indication: ACUTE SINUSITIS
     Dates: start: 20050221, end: 20050224
  2. LEVAQUIN [Suspect]
     Indication: ACUTE SINUSITIS
     Dosage: INTRAVENOUS
     Route: 042
     Dates: start: 20050224, end: 20050226
  3. ZOCOR [Concomitant]
  4. COZAAR [Concomitant]
  5. CARDURA [Concomitant]
  6. HCTZ (HYDROCHLOROTHIAZIDE) [Concomitant]
  7. POTASSIUM [Concomitant]

REACTIONS (4)
  - ASTHENIA [None]
  - DEHYDRATION [None]
  - DIZZINESS [None]
  - NAUSEA [None]
